FAERS Safety Report 16596363 (Version 1)
Quarter: 2019Q3

REPORT INFORMATION
  Report Type: Spontaneous
  Country: AU (occurrence: AU)
  Receive Date: 20190719
  Receipt Date: 20190719
  Transmission Date: 20191004
  Serious: Yes (Other)
  Sender: FDA-Public Use
  Company Number: AU-LEO PHARMA-322942

PATIENT
  Sex: Female

DRUGS (1)
  1. PICATO [Suspect]
     Active Substance: INGENOL MEBUTATE
     Indication: ACTINIC KERATOSIS
     Route: 061

REACTIONS (10)
  - Headache [Unknown]
  - Application site vesicles [Unknown]
  - Application site discharge [Unknown]
  - Incorrect product administration duration [Unknown]
  - Palpitations [Unknown]
  - Application site swelling [Unknown]
  - Blood pressure increased [Unknown]
  - Heart rate increased [Unknown]
  - Application site erythema [Unknown]
  - Application site pain [Unknown]
